FAERS Safety Report 22534202 (Version 1)
Quarter: 2023Q2

REPORT INFORMATION
  Report Type: Spontaneous
  Country: US (occurrence: US)
  Receive Date: 20230608
  Receipt Date: 20230608
  Transmission Date: 20230721
  Serious: No
  Sender: FDA-Public Use
  Company Number: US-ELI_LILLY_AND_COMPANY-US202306003725

PATIENT
  Sex: Male

DRUGS (2)
  1. MOUNJARO [Suspect]
     Active Substance: TIRZEPATIDE
     Indication: Glycosylated haemoglobin decreased
     Dosage: 5 MG, UNKNOWN
     Route: 058
  2. MOUNJARO [Suspect]
     Active Substance: TIRZEPATIDE
     Indication: Glycosylated haemoglobin decreased
     Dosage: 7.5 MG, UNKNOWN
     Route: 058
     Dates: start: 20230529

REACTIONS (5)
  - Off label use [Unknown]
  - Hyperchlorhydria [Unknown]
  - Dyspepsia [Unknown]
  - Nausea [Unknown]
  - Eructation [Unknown]
